FAERS Safety Report 7270324-1 (Version None)
Quarter: 2011Q1

REPORT INFORMATION
  Report Type: 
  Country: None (occurrence: None)
  Receive Date: 20110202
  Receipt Date: 20101220
  Transmission Date: 20110831
  Serious: Yes (Other)
  Sender: FDA-Public Use
  Company Number: US-BAYER-200943996NA

PATIENT
  Sex: Female

DRUGS (10)
  1. YASMIN [Suspect]
     Dates: start: 20081101
  2. ALBUTEROL [Concomitant]
     Dosage: 1 PUFF(S), PRN
  3. TOPAMAX [Concomitant]
     Dosage: 1 UNK, UNK
  4. PRILOSEC [Concomitant]
  5. SINGULAIR [Concomitant]
     Dosage: 10 MG/24HR, UNK
  6. ADVAIR [Concomitant]
     Dosage: 1 PUFF(S), BID
  7. MULTI-VITAMIN [Concomitant]
  8. LORATADINE [Concomitant]
     Dosage: 10 MG/24HR, UNK
  9. YAZ [Suspect]
     Dates: start: 20081101
  10. UNCODEABLE ^UNCLASSIFIABLE^ [Concomitant]

REACTIONS (5)
  - CHOLECYSTITIS CHRONIC [None]
  - VOMITING [None]
  - MUSCULOSKELETAL CHEST PAIN [None]
  - NAUSEA [None]
  - GASTROOESOPHAGEAL REFLUX DISEASE [None]
